FAERS Safety Report 8315471-8 (Version None)
Quarter: 2012Q2

REPORT INFORMATION
  Report Type: 
  Country: None (occurrence: None)
  Receive Date: 20120426
  Receipt Date: 20120420
  Transmission Date: 20120825
  Serious: Yes (Hospitalization)
  Sender: FDA-Public Use
  Company Number: JP-TEVA-331917USA

PATIENT
  Sex: Male

DRUGS (11)
  1. LIVACT [Concomitant]
     Dates: start: 20080802, end: 20110801
  2. FUROSEMIDE [Concomitant]
     Dates: start: 20080805, end: 20110804
  3. SPIRONOLACTONE [Concomitant]
     Dates: start: 20081129, end: 20110801
  4. RABEPRAZOLE SODIUM [Concomitant]
  5. CIMETIDINE [Concomitant]
     Dates: start: 20080802, end: 20081023
  6. AMINOLEBAN                         /00957801/ [Concomitant]
  7. GALZIN [Suspect]
     Indication: HEPATO-LENTICULAR DEGENERATION
     Dosage: 450 MILLIGRAM;
     Route: 048
     Dates: start: 20080802, end: 20110801
  8. FERROUS CITRATE [Concomitant]
     Dates: start: 20100603, end: 20110801
  9. MIRIPLA [Concomitant]
     Dates: start: 20120216, end: 20120216
  10. FAMOTIDINE [Concomitant]
     Dates: start: 20110314, end: 20110801
  11. URSO 250 [Concomitant]
     Dates: start: 20080802, end: 20110801

REACTIONS (7)
  - HEPATIC NEOPLASM MALIGNANT [None]
  - CHOLANGITIS [None]
  - VARICES OESOPHAGEAL [None]
  - PYREXIA [None]
  - GASTRIC ULCER [None]
  - MELAENA [None]
  - CHOLANGITIS ACUTE [None]
